FAERS Safety Report 7132428-3 (Version None)
Quarter: 2010Q4

REPORT INFORMATION
  Report Type: 
  Country: None (occurrence: None)
  Receive Date: 20101202
  Receipt Date: 20101124
  Transmission Date: 20110411
  Serious: Yes (Other)
  Sender: FDA-Public Use
  Company Number: JP-ROCHE-716710

PATIENT
  Sex: Female
  Weight: 54 kg

DRUGS (13)
  1. TOCILIZUMAB [Suspect]
     Indication: RHEUMATOID ARTHRITIS
     Route: 041
     Dates: start: 20090227, end: 20090227
  2. TOCILIZUMAB [Suspect]
     Route: 041
     Dates: start: 20090327, end: 20090327
  3. TOCILIZUMAB [Suspect]
     Route: 041
     Dates: start: 20090422, end: 20090422
  4. TOCILIZUMAB [Suspect]
     Route: 041
     Dates: start: 20090527, end: 20090527
  5. TOCILIZUMAB [Suspect]
     Route: 041
     Dates: start: 20090624, end: 20090624
  6. TOCILIZUMAB [Suspect]
     Route: 041
     Dates: start: 20090722, end: 20090722
  7. TOCILIZUMAB [Suspect]
     Route: 041
     Dates: start: 20090819
  8. LOXONIN [Concomitant]
     Route: 048
  9. SELBEX [Concomitant]
     Dosage: FORM: PERORAL AGENT
     Route: 048
  10. URINORM [Concomitant]
     Route: 048
  11. GLAKAY [Concomitant]
     Dosage: FORM REPORTED: PERORAL AGENT
     Route: 048
  12. ZYRTEC [Concomitant]
     Route: 048
  13. ALENDRONIC ACID [Concomitant]
     Dosage: DRUG REPORTED AS FOSAMAC 35 MG
     Route: 048
     Dates: start: 20090624

REACTIONS (1)
  - BLOOD UREA INCREASED [None]
